FAERS Safety Report 13260698 (Version 3)
Quarter: 2017Q2

REPORT INFORMATION
  Report Type: Report from Study
  Country: US (occurrence: US)
  Receive Date: 20170222
  Receipt Date: 20170420
  Transmission Date: 20170830
  Serious: Yes (Life-Threatening, Hospitalization, Other)
  Sender: FDA-Public Use
  Company Number: US-GILEAD-2017-0259208

PATIENT
  Age: 77 Year
  Sex: Female

DRUGS (16)
  1. MULTI MINERAL PLUS [Concomitant]
  2. LOVENOX [Concomitant]
     Active Substance: ENOXAPARIN SODIUM
  3. ZITHROMAX [Concomitant]
     Active Substance: AZITHROMYCIN DIHYDRATE
  4. TAMIFLU [Concomitant]
     Active Substance: OSELTAMIVIR PHOSPHATE
  5. ASPIRIN                            /00002701/ [Concomitant]
     Active Substance: ASPIRIN
  6. IRON [Concomitant]
     Active Substance: IRON
  7. CEFDINIR. [Concomitant]
     Active Substance: CEFDINIR
  8. KCL [Concomitant]
     Active Substance: POTASSIUM CHLORIDE
  9. AMBRISENTAN [Suspect]
     Active Substance: AMBRISENTAN
     Indication: PULMONARY ARTERIAL HYPERTENSION
     Dosage: 10 MG, QD
     Route: 065
     Dates: start: 20160323
  10. SINGULAIR [Concomitant]
     Active Substance: MONTELUKAST SODIUM
  11. VITAMIN D [Concomitant]
     Active Substance: CHOLECALCIFEROL
  12. NITROGLYCERIN. [Concomitant]
     Active Substance: NITROGLYCERIN
  13. METOPROLOL. [Concomitant]
     Active Substance: METOPROLOL
  14. FUROSEMIDE. [Concomitant]
     Active Substance: FUROSEMIDE
  15. QUINAPRIL. [Concomitant]
     Active Substance: QUINAPRIL
  16. KLOR-CON [Concomitant]
     Active Substance: POTASSIUM CHLORIDE

REACTIONS (4)
  - Influenza [Recovered/Resolved]
  - Viral upper respiratory tract infection [Not Recovered/Not Resolved]
  - Pneumonia [Unknown]
  - Pneumonia [Recovered/Resolved]

NARRATIVE: CASE EVENT DATE: 20170127
